FAERS Safety Report 9613534 (Version 1)
Quarter: 2013Q4

REPORT INFORMATION
  Report Type: Spontaneous
  Country: IT (occurrence: IT)
  Receive Date: 20131010
  Receipt Date: 20131010
  Transmission Date: 20140711
  Serious: Yes (Hospitalization)
  Sender: FDA-Public Use
  Company Number: IT-MYLANLABS-2013S1022013

PATIENT
  Age: 66 Year
  Sex: Female

DRUGS (2)
  1. EPINEPHRINE [Suspect]
     Indication: LOCAL ANAESTHESIA
     Dosage: 0.4MG; NASAL AREA INFILTRATION
     Route: 045
  2. CARBOCAINE [Concomitant]
     Indication: LOCAL ANAESTHESIA
     Dosage: 80MG; NASAL AREA INFILTRATION
     Route: 045

REACTIONS (1)
  - Stress cardiomyopathy [Recovered/Resolved]
